FAERS Safety Report 24347426 (Version 1)
Quarter: 2024Q3

REPORT INFORMATION
  Report Type: Spontaneous
  Country: US (occurrence: US)
  Receive Date: 20240922
  Receipt Date: 20240922
  Transmission Date: 20241016
  Serious: No
  Sender: MERCK
  Company Number: US-009507513-2409USA005178

PATIENT
  Sex: Male
  Weight: 99.8 kg

DRUGS (22)
  1. WINREVAIR [Suspect]
     Active Substance: SOTATERCEPT-CSRK
     Indication: Product used for unknown indication
  2. REMODULIN [Suspect]
     Active Substance: TREPROSTINIL
     Indication: Pulmonary arterial hypertension
     Dosage: UNK, DELIVERED VIA REMUNITY (SELF-FILLED) PUMP
     Route: 058
     Dates: start: 20220920
  3. REMODULIN [Suspect]
     Active Substance: TREPROSTINIL
     Dosage: 0.047 MICROGRAM/KG (2.7ML PER CASSETTE WITH PUMP RATE OF 30MCL PER HOUR), CONTINUOUS VIA SQ
     Route: 058
  4. IBUPROFEN [Concomitant]
     Active Substance: IBUPROFEN
  5. OPSUMIT [Concomitant]
     Active Substance: MACITENTAN
  6. NEURONTIN [Concomitant]
     Active Substance: GABAPENTIN
  7. TADALAFIL [Concomitant]
     Active Substance: TADALAFIL
  8. LASIX [Concomitant]
     Active Substance: FUROSEMIDE
  9. KETAMINE HYDROCHLORIDE [Concomitant]
     Active Substance: KETAMINE HYDROCHLORIDE
  10. LECITHIN [Concomitant]
     Active Substance: LECITHIN
  11. NORCO [Concomitant]
     Active Substance: ACETAMINOPHEN\HYDROCODONE BITARTRATE
  12. KLOR-CON M20 [Concomitant]
     Active Substance: POTASSIUM CHLORIDE
  13. METOLAZONE [Concomitant]
     Active Substance: METOLAZONE
  14. ELIQUIS [Concomitant]
     Active Substance: APIXABAN
  15. CLONIDINE [Concomitant]
     Active Substance: CLONIDINE
  16. KETOPROFEN [Concomitant]
     Active Substance: KETOPROFEN
  17. LIDOCAINE [Concomitant]
     Active Substance: LIDOCAINE
  18. TYLENOL EXTRA STRENGTH [Concomitant]
     Active Substance: ACETAMINOPHEN
  19. AMITRIPTYLINE [Concomitant]
     Active Substance: AMITRIPTYLINE
  20. POLOXAMER [Concomitant]
     Active Substance: POLOXAMER
  21. ZOFRAN [Concomitant]
     Active Substance: ONDANSETRON HYDROCHLORIDE
  22. ULORIC [Concomitant]
     Active Substance: FEBUXOSTAT

REACTIONS (1)
  - Treatment failure [Unknown]
